FAERS Safety Report 25339201 (Version 2)
Quarter: 2025Q2

REPORT INFORMATION
  Report Type: Report from Study
  Country: US (occurrence: US)
  Receive Date: 20250521
  Receipt Date: 20250527
  Transmission Date: 20250717
  Serious: Yes (Hospitalization)
  Sender: ABBVIE
  Company Number: US-ABBVIE-6283939

PATIENT
  Age: 66 Year
  Sex: Female
  Weight: 51.709 kg

DRUGS (1)
  1. MAVYRET [Suspect]
     Active Substance: GLECAPREVIR\PIBRENTASVIR
     Indication: Hepatitis C
     Dosage: 3 TABLET
     Route: 048
     Dates: start: 20250426

REACTIONS (5)
  - Visual impairment [Unknown]
  - Rash [Unknown]
  - Balance disorder [Unknown]
  - Tremor [Unknown]
  - Nervous system disorder [Unknown]

NARRATIVE: CASE EVENT DATE: 20250505
